FAERS Safety Report 23780105 (Version 2)
Quarter: 2024Q4

REPORT INFORMATION
  Report Type: Spontaneous
  Country: FR (occurrence: FR)
  Receive Date: 20240424
  Receipt Date: 20241202
  Transmission Date: 20250115
  Serious: Yes (Death)
  Sender: GE HEALTHCARE
  Company Number: None

PATIENT
  Sex: Female
  Weight: 1.038 kg

DRUGS (26)
  1. VISIPAQUE [Suspect]
     Active Substance: IODIXANOL
     Indication: Diagnostic procedure
     Dosage: 60 ML, TOTAL
     Route: 064
     Dates: start: 20230425, end: 20230425
  2. VISIPAQUE [Suspect]
     Active Substance: IODIXANOL
     Indication: General anaesthesia
  3. CLONIDINE HYDROCHLORIDE [Suspect]
     Active Substance: CLONIDINE HYDROCHLORIDE
     Indication: General anaesthesia
     Dosage: 75 ?G
     Route: 064
     Dates: start: 20230425, end: 20230425
  4. OXYCODONE [Suspect]
     Active Substance: OXYCODONE
     Indication: General anaesthesia
     Dosage: 4 MG
     Route: 064
     Dates: start: 20230425, end: 20230425
  5. SUFENTANIL [Suspect]
     Active Substance: SUFENTANIL
     Indication: General anaesthesia
     Dosage: 15 ?G
     Route: 064
     Dates: start: 20230425, end: 20230425
  6. SUCCINYLCHOLINE CHLORIDE [Suspect]
     Active Substance: SUCCINYLCHOLINE CHLORIDE
     Indication: General anaesthesia
     Dosage: 60 MG
     Route: 064
     Dates: start: 20230425, end: 20230425
  7. ATRACURIUM [Suspect]
     Active Substance: ATRACURIUM
     Indication: General anaesthesia
     Dosage: 45 MG
     Route: 064
     Dates: start: 20230425, end: 20230425
  8. PROPOFOL [Suspect]
     Active Substance: PROPOFOL
     Indication: General anaesthesia
     Dosage: 150 MG
     Route: 064
     Dates: start: 20230425, end: 20230425
  9. AUGMENTIN [Suspect]
     Active Substance: AMOXICILLIN\CLAVULANATE POTASSIUM
     Indication: General anaesthesia
     Dosage: 2 GM
     Route: 064
     Dates: start: 20230425, end: 20230425
  10. LIDOCAINE HYDROCHLORIDE [Suspect]
     Active Substance: LIDOCAINE HYDROCHLORIDE
     Indication: General anaesthesia
     Dosage: 60 MG
     Route: 064
     Dates: start: 20230425, end: 20230425
  11. ATROPINE [Suspect]
     Active Substance: ATROPINE
     Indication: General anaesthesia
     Dosage: 1 MG
     Route: 064
     Dates: start: 20230425, end: 20230425
  12. MAGNESIUM SULFATE HEPTAHYDRATE [Suspect]
     Active Substance: MAGNESIUM SULFATE HEPTAHYDRATE
     Indication: General anaesthesia
     Dosage: 3 GM
     Route: 064
     Dates: start: 20230425, end: 20230425
  13. NEFOPAM HYDROCHLORIDE [Suspect]
     Active Substance: NEFOPAM HYDROCHLORIDE
     Indication: General anaesthesia
     Dosage: 20 MG
     Route: 064
     Dates: start: 20230425, end: 20230425
  14. ACETAMINOPHEN [Suspect]
     Active Substance: ACETAMINOPHEN
     Indication: General anaesthesia
     Dosage: 1 GM
     Route: 064
     Dates: start: 20230425, end: 20230425
  15. NOREPINEPHRINE [Suspect]
     Active Substance: NOREPINEPHRINE\NOREPINEPHRINE BITARTRATE
     Indication: General anaesthesia
     Dosage: 463 ?G
     Route: 064
     Dates: start: 20230425, end: 20230425
  16. NEOSTIGMINE [Suspect]
     Active Substance: NEOSTIGMINE
     Indication: General anaesthesia
     Dosage: 2.5 MG
     Route: 064
     Dates: start: 20230425, end: 20230425
  17. MIDAZOLAM [Suspect]
     Active Substance: MIDAZOLAM
     Indication: General anaesthesia
     Dosage: 1 MG
     Route: 064
     Dates: start: 20230425, end: 20230425
  18. KETAMINE HYDROCHLORIDE [Suspect]
     Active Substance: KETAMINE HYDROCHLORIDE
     Indication: General anaesthesia
     Dosage: 70 MG
     Route: 064
     Dates: start: 20230425, end: 20230425
  19. ENOXAPARIN SODIUM [Concomitant]
     Active Substance: ENOXAPARIN SODIUM
     Route: 064
  20. PHLOROGLUCINOL [Concomitant]
     Active Substance: PHLOROGLUCINOL
     Route: 064
  21. TRIMEBUTINE [Concomitant]
     Active Substance: TRIMEBUTINE
     Route: 064
  22. FERINJECT [Concomitant]
     Active Substance: FERRIC CARBOXYMALTOSE
     Route: 064
  23. LANSOPRAZOLE [Concomitant]
     Active Substance: LANSOPRAZOLE
     Route: 064
  24. INNOHEP [Concomitant]
     Active Substance: TINZAPARIN SODIUM
     Route: 064
  25. LEVOTHYROXINE [Concomitant]
     Active Substance: LEVOTHYROXINE
     Route: 064
  26. NOVORAPID [Concomitant]
     Active Substance: INSULIN ASPART
     Route: 064

REACTIONS (4)
  - Abortion induced [Fatal]
  - Schizencephaly [Fatal]
  - Cerebral haemorrhage foetal [Fatal]
  - Foetal exposure during pregnancy [Recovered/Resolved]

NARRATIVE: CASE EVENT DATE: 20230425
